FAERS Safety Report 5381018-1 (Version None)
Quarter: 2007Q3

REPORT INFORMATION
  Report Type: 
  Country: None (occurrence: None)
  Receive Date: 20070706
  Receipt Date: 20070628
  Transmission Date: 20080115
  Serious: Yes (Other)
  Sender: FDA-Public Use
  Company Number: US-GENENTECH-243814

PATIENT

DRUGS (1)
  1. RITUXAN [Suspect]
     Indication: GUILLAIN-BARRE SYNDROME

REACTIONS (1)
  - PARALYSIS [None]
